FAERS Safety Report 23103491 (Version 8)
Quarter: 2024Q4

REPORT INFORMATION
  Report Type: Report from Study
  Country: US (occurrence: US)
  Receive Date: 20231025
  Receipt Date: 20241210
  Transmission Date: 20250115
  Serious: Yes (Hospitalization, Other)
  Sender: NOVARTIS
  Company Number: US-002147023-NVSC2023US226106

PATIENT
  Age: 50 Year
  Sex: Female

DRUGS (1)
  1. KESIMPTA [Suspect]
     Active Substance: OFATUMUMAB
     Indication: Product used for unknown indication
     Dosage: UNK
     Route: 065
     Dates: start: 20231017

REACTIONS (30)
  - Pneumonia [Unknown]
  - Chills [Unknown]
  - Head discomfort [Unknown]
  - Night sweats [Unknown]
  - Pyrexia [Unknown]
  - Chest pain [Recovering/Resolving]
  - Abdominal discomfort [Unknown]
  - Pain [Unknown]
  - Pneumonitis [Unknown]
  - COVID-19 [Unknown]
  - Headache [Unknown]
  - Migraine [Unknown]
  - Eye swelling [Unknown]
  - Swelling face [Unknown]
  - Cough [Unknown]
  - Ear swelling [Unknown]
  - Erythema [Unknown]
  - Feeling cold [Unknown]
  - Arthralgia [Unknown]
  - Fatigue [Recovered/Resolved]
  - Urticaria [Unknown]
  - Pruritus [Unknown]
  - Injection site pain [Unknown]
  - Papule [Recovered/Resolved]
  - Rash [Recovered/Resolved]
  - Chills [Recovered/Resolved]
  - Blood cholesterol increased [Unknown]
  - Blood calcium decreased [Unknown]
  - Asthenia [Unknown]
  - Hepatic enzyme increased [Recovering/Resolving]

NARRATIVE: CASE EVENT DATE: 20231017
